FAERS Safety Report 5289135-1 (Version None)
Quarter: 2007Q1

REPORT INFORMATION
  Report Type: 
  Country: None (occurrence: None)
  Receive Date: 20070124
  Receipt Date: 20060626
  Transmission Date: 20070707
  Serious: Yes (Other)
  Sender: FDA-Public Use
  Company Number: US200606005557

PATIENT
  Sex: Female

DRUGS (2)
  1. FORTEO [Suspect]
  2. FORTEO PEN (250MCG/ML) (FORTEO 250MCG/ML (3ML)) PEN,DISPOSABLE [Concomitant]

REACTIONS (1)
  - SYNCOPE [None]
